FAERS Safety Report 10493467 (Version 2)
Quarter: 2015Q1

REPORT INFORMATION
  Report Type: Spontaneous
  Country: US (occurrence: US)
  Receive Date: 20141002
  Receipt Date: 20150128
  Transmission Date: 20150720
  Serious: No
  Sender: FDA-Public Use
  Company Number: US-GLAXOSMITHKLINE-A1084554A

PATIENT

DRUGS (3)
  1. ADVAIR DISKUS [Suspect]
     Active Substance: FLUTICASONE PROPIONATE\SALMETEROL XINAFOATE
     Indication: EMPHYSEMA
     Dosage: 500/50
     Route: 055
     Dates: start: 200808, end: 20140731
  2. BREO ELLIPTA [Suspect]
     Active Substance: FLUTICASONE FUROATE\VILANTEROL TRIFENATATE
     Indication: EMPHYSEMA
     Route: 055
     Dates: start: 20140801
  3. EYE DROPS EYE DROPS, SOLUTION [Concomitant]
     Indication: INTRAOCULAR PRESSURE INCREASED

REACTIONS (5)
  - Rash pruritic [Not Recovered/Not Resolved]
  - Nocturia [Unknown]
  - Rash generalised [Unknown]
  - Drug administration error [Unknown]
  - Intraocular pressure increased [Unknown]
